FAERS Safety Report 8977231 (Version 1)
Quarter: 2012Q4

REPORT INFORMATION
  Report Type: 
  Country: AU (occurrence: AU)
  Receive Date: 20121220
  Receipt Date: 20121220
  Transmission Date: 20130627
  Serious: Yes (Other)
  Sender: FDA-Public Use
  Company Number: AU-MEDICIS-2012P1067308

PATIENT
  Age: 49 Year
  Sex: Female

DRUGS (1)
  1. MINOCYCLINE [Suspect]
     Indication: ROSACEA

REACTIONS (1)
  - Acute febrile neutrophilic dermatosis [Recovered/Resolved]
